FAERS Safety Report 10037173 (Version 2)
Quarter: 2014Q2

REPORT INFORMATION
  Report Type: Spontaneous
  Country: US (occurrence: US)
  Receive Date: 20140326
  Receipt Date: 20140502
  Transmission Date: 20141212
  Serious: Yes (Hospitalization, Other)
  Sender: FDA-Public Use
  Company Number: US-JNJFOC-20140308061

PATIENT
  Age: 19 Year
  Sex: Female

DRUGS (2)
  1. ACETAMINOPHEN [Suspect]
     Route: 065
  2. ACETAMINOPHEN [Suspect]
     Indication: DYSMENORRHOEA
     Dosage: TOTAL DOSE BETWEEN 78 TO 120 GRAMS FOR TWO DAYS
     Route: 065

REACTIONS (7)
  - Pancreatic pseudocyst [Recovering/Resolving]
  - Pancreatitis [Recovered/Resolved]
  - Acute hepatic failure [Recovered/Resolved]
  - Renal failure acute [Recovered/Resolved]
  - Respiratory failure [Unknown]
  - Toxicity to various agents [Unknown]
  - Overdose [Unknown]
